FAERS Safety Report 4309024-6 (Version None)
Quarter: 2004Q1

REPORT INFORMATION
  Report Type: 
  Country: None (occurrence: None)
  Receive Date: 20040301
  Receipt Date: 20040212
  Transmission Date: 20041129
  Serious: Yes (Hospitalization)
  Sender: FDA-Public Use
  Company Number: SIE-FLU-001

PATIENT
  Age: 78 Year
  Sex: Female

DRUGS (11)
  1. ASPIRIN [Suspect]
     Indication: PROPHYLAXIS
     Dosage: 100 MG X 1, P.O.
     Route: 048
     Dates: end: 20040111
  2. FLUOXETINE [Suspect]
     Indication: DEPRESSION
     Dosage: 20 MG X 2, P.O.
     Route: 048
     Dates: end: 20040111
  3. SINTROM (ACENOCUMAROL) [Suspect]
     Indication: ATRIAL FIBRILLATION
     Dosage: AS NECESSARY
     Dates: end: 20040111
  4. DIGOXIN [Concomitant]
  5. EPRIL (ENALAPRIL) [Concomitant]
  6. HYGROTON (CHLORTHALIDONE) [Concomitant]
  7. POTASSIUM [Concomitant]
  8. RANITIDINE MEPHA (RANITIDINE) [Concomitant]
  9. TOREM (TORASEMIDE) [Concomitant]
  10. VIOXX [Concomitant]
  11. INSULIN MEXTARD (INSULIN) [Concomitant]

REACTIONS (3)
  - ANAEMIA [None]
  - GASTROINTESTINAL HAEMORRHAGE [None]
  - SHOCK HAEMORRHAGIC [None]
